FAERS Safety Report 7090403-1 (Version None)
Quarter: 2010Q4

REPORT INFORMATION
  Report Type: 
  Country: None (occurrence: None)
  Receive Date: 20101012
  Receipt Date: 20100902
  Transmission Date: 20110411
  Serious: No
  Sender: FDA-Public Use
  Company Number: US-001281

PATIENT
  Sex: Female
  Weight: 66 kg

DRUGS (1)
  1. KUVAN [Suspect]
     Indication: PHENYLKETONURIA
     Dosage: (1300 MG QD ORAL)
     Route: 048
     Dates: start: 20100819

REACTIONS (1)
  - PRURITUS [None]
